FAERS Safety Report 17075807 (Version 2)
Quarter: 2020Q1

REPORT INFORMATION
  Report Type: Spontaneous
  Country: US (occurrence: US)
  Receive Date: 20191126
  Receipt Date: 20200213
  Transmission Date: 20200409
  Serious: No
  Sender: FDA-Public Use
  Company Number: US-PFIZER INC-2019511047

PATIENT
  Age: 70 Year
  Sex: Female
  Weight: 52.15 kg

DRUGS (2)
  1. HYDROXYCHLOROQUINE [Concomitant]
     Active Substance: HYDROXYCHLOROQUINE
     Dosage: UNK
  2. METHOTREXATE. [Suspect]
     Active Substance: METHOTREXATE
     Indication: RHEUMATOID ARTHRITIS
     Dosage: 62.5 MG, 1X/DAY
     Dates: start: 2011, end: 201911

REACTIONS (4)
  - Asthenia [Unknown]
  - Quality of life decreased [Unknown]
  - Fatigue [Unknown]
  - Drug ineffective [Unknown]
